FAERS Safety Report 7290445-7 (Version None)
Quarter: 2011Q1

REPORT INFORMATION
  Report Type: 
  Country: None (occurrence: None)
  Receive Date: 20110214
  Receipt Date: 20110209
  Transmission Date: 20110831
  Serious: No
  Sender: FDA-Public Use
  Company Number: US-PFIZER INC-2011029546

PATIENT
  Sex: Female

DRUGS (1)
  1. ZMAX [Suspect]
     Indication: SINUSITIS BACTERIAL
     Dosage: 2 G, 1X/DAY
     Route: 048
     Dates: start: 20110101, end: 20110101

REACTIONS (1)
  - VOMITING [None]
